FAERS Safety Report 6574143-0 (Version None)
Quarter: 2010Q1

REPORT INFORMATION
  Report Type: 
  Country: None (occurrence: None)
  Receive Date: 20100208
  Receipt Date: 20100202
  Transmission Date: 20100710
  Serious: Yes (Death)
  Sender: FDA-Public Use
  Company Number: GB-ROCHE-675583

PATIENT
  Sex: Female
  Weight: 71.2 kg

DRUGS (3)
  1. BEVACIZUMAB [Suspect]
     Indication: COLON CANCER
     Dosage: DATE OF MOST RECENT DOSE: 04 DECEMBER 2009, CURRENT CYCLE NUMBER: 4
     Route: 042
     Dates: start: 20090825
  2. CAPECITABINE [Suspect]
     Indication: COLON CANCER
     Dosage: CURRENT CYCLE NUMBER: 4, DATE OF MOST RECENT DOSE: 04 DECEMBER 2009
     Route: 048
     Dates: start: 20090825
  3. ATENOLOL [Concomitant]
     Indication: HYPERTENSION
     Route: 048

REACTIONS (3)
  - AORTIC DISSECTION [None]
  - CARDIAC ARREST [None]
  - PERICARDIAL HAEMORRHAGE [None]
